FAERS Safety Report 4977889-0 (Version None)
Quarter: 2006Q2

REPORT INFORMATION
  Report Type: 
  Country: None (occurrence: None)
  Receive Date: 20060414
  Receipt Date: 20060329
  Transmission Date: 20061013
  Serious: Yes (Life-Threatening)
  Sender: FDA-Public Use
  Company Number: S06-FIN-01338-01

PATIENT
  Age: 25 Year
  Sex: Female

DRUGS (3)
  1. CITALOPRAM HYDROBROMIDE [Suspect]
     Indication: PANIC DISORDER
     Dosage: 20 MG QD PO
     Route: 048
  2. ANTIBIOTIC [Concomitant]
  3. CORTICOSTEROID [Concomitant]

REACTIONS (11)
  - AMNIOCENTESIS ABNORMAL [None]
  - DRUG EXPOSURE DURING PREGNANCY [None]
  - DYSPNOEA [None]
  - HAEMOGLOBIN INCREASED [None]
  - HYPERAEMIA [None]
  - NEONATAL DISORDER [None]
  - NEONATAL INFECTION [None]
  - PATENT DUCTUS ARTERIOSUS [None]
  - PLATELET COUNT DECREASED [None]
  - PREMATURE BABY [None]
  - WHITE BLOOD CELL COUNT DECREASED [None]
